FAERS Safety Report 4360398-X (Version None)
Quarter: 2004Q2

REPORT INFORMATION
  Report Type: 
  Country: None (occurrence: None)
  Receive Date: 20040514
  Receipt Date: 20040506
  Transmission Date: 20050107
  Serious: Yes (Death)
  Sender: FDA-Public Use
  Company Number: HQWYE797910MAY04

PATIENT
  Age: 31 Year
  Sex: Male

DRUGS (1)
  1. MINOCIN [Suspect]
     Indication: ACNE
     Dosage: 200 MG , ORAL
     Route: 048

REACTIONS (1)
  - LIVER DISORDER [None]
